FAERS Safety Report 9311897 (Version 1)
Quarter: 2013Q2

REPORT INFORMATION
  Report Type: Spontaneous
  Country: US (occurrence: US)
  Receive Date: 20130528
  Receipt Date: 20130528
  Transmission Date: 20140414
  Serious: Yes (Other)
  Sender: FDA-Public Use
  Company Number: PHEH2013US011537

PATIENT
  Sex: Female

DRUGS (3)
  1. ZOMETA [Suspect]
     Indication: PLASMA CELL MYELOMA
     Dosage: 4 MG, ONCE A MONTH
     Route: 042
     Dates: start: 20110523, end: 20130320
  2. REVLIMID [Concomitant]
     Dosage: UNK UKN, UNK
  3. DEXAM//DEXAMETHASONE [Concomitant]
     Dosage: UNK UKN, UNK

REACTIONS (1)
  - Osteonecrosis of jaw [Recovering/Resolving]
